FAERS Safety Report 10300963 (Version 1)
Quarter: 2014Q3

REPORT INFORMATION
  Report Type: Spontaneous
  Country: US (occurrence: US)
  Receive Date: 20140714
  Receipt Date: 20140714
  Transmission Date: 20150326
  Serious: No
  Sender: FDA-Public Use
  Company Number: US-PFIZER INC-2014193218

PATIENT
  Age: 52 Year
  Sex: Male

DRUGS (4)
  1. EFFEXOR [Suspect]
     Active Substance: VENLAFAXINE HYDROCHLORIDE
     Dosage: UNK
  2. REMERON [Suspect]
     Active Substance: MIRTAZAPINE
     Dosage: UNK
  3. HIVID [Suspect]
     Active Substance: ZALCITABINE
     Dosage: UNK
  4. ABILIFY [Suspect]
     Active Substance: ARIPIPRAZOLE
     Dosage: UNK

REACTIONS (1)
  - Drug hypersensitivity [Unknown]
